FAERS Safety Report 8492881-X (Version None)
Quarter: 2012Q3

REPORT INFORMATION
  Report Type: 
  Country: None (occurrence: None)
  Receive Date: 20120706
  Receipt Date: 20120628
  Transmission Date: 20120928
  Serious: Yes (Hospitalization, Other)
  Sender: FDA-Public Use
  Company Number: US-JNJFOC-20120700348

PATIENT
  Sex: Female
  Weight: 59.7 kg

DRUGS (4)
  1. METRONIDAZOLE [Concomitant]
  2. HUMIRA [Concomitant]
  3. INFLIXIMAB, RECOMBINANT [Suspect]
     Indication: INFLAMMATORY BOWEL DISEASE
     Route: 042
     Dates: start: 20030214, end: 20030328
  4. PREDNISONE [Concomitant]

REACTIONS (2)
  - INTESTINAL PERFORATION [None]
  - PELVIC ABSCESS [None]
